FAERS Safety Report 9023229 (Version 1)
Quarter: 2013Q1

REPORT INFORMATION
  Report Type: Spontaneous
  Country: US (occurrence: US)
  Receive Date: 20130120
  Receipt Date: 20130120
  Transmission Date: 20140127
  Serious: No
  Sender: FDA-Public Use
  Company Number: US-ALLERGAN-1214201US

PATIENT
  Age: 64 None
  Sex: Female
  Weight: 70.3 kg

DRUGS (4)
  1. BOTOX COSMETIC [Suspect]
     Indication: SKIN WRINKLING
     Dosage: UNK, SINGLE
     Route: 030
     Dates: start: 20120917, end: 20120917
  2. BOTOX COSMETIC [Suspect]
     Indication: SKIN WRINKLING
  3. ESTRACE [Concomitant]
     Indication: PRODUCT USED FOR UNKNOWN INDICATION
     Dosage: 0.5 MG, UNK
     Route: 048
  4. ALLERGY PILLS [Concomitant]
     Indication: HYPERSENSITIVITY

REACTIONS (3)
  - Strabismus [Recovering/Resolving]
  - Diplopia [Recovering/Resolving]
  - Injection site pain [Recovered/Resolved]
